FAERS Safety Report 4753241-8 (Version None)
Quarter: 2005Q3

REPORT INFORMATION
  Report Type: 
  Country: None (occurrence: None)
  Receive Date: 20050824
  Receipt Date: 20050815
  Transmission Date: 20060218
  Serious: Yes (Other)
  Sender: FDA-Public Use
  Company Number: 2005-08-1229

PATIENT

DRUGS (2)
  1. RIBAVIRIN [Suspect]
     Indication: HEPATITIS C
     Dosage: ORAL
  2. INTERFERON INJECTABLE [Suspect]
     Indication: HEPATITIS C

REACTIONS (3)
  - ANAEMIA [None]
  - HAEMOLYSIS [None]
  - RENAL FAILURE [None]
